FAERS Safety Report 21966160 (Version 1)
Quarter: 2023Q1

REPORT INFORMATION
  Report Type: Report from Study
  Country: MX (occurrence: MX)
  Receive Date: 20230208
  Receipt Date: 20230208
  Transmission Date: 20230417
  Serious: Yes (Other)
  Sender: FDA-Public Use
  Company Number: MX-AstraZeneca-2023A028590

PATIENT
  Age: 1 Year
  Sex: Female
  Weight: 7 kg

DRUGS (3)
  1. SYNAGIS [Suspect]
     Active Substance: PALIVIZUMAB
     Indication: Bronchopulmonary dysplasia
     Dosage: 1MG/ML MONTHLY
     Dates: start: 20220812
  2. SYNAGIS [Suspect]
     Active Substance: PALIVIZUMAB
     Indication: Premature baby
     Dosage: 1MG/ML MONTHLY
     Dates: start: 20220909
  3. SYNAGIS [Suspect]
     Active Substance: PALIVIZUMAB
     Dosage: 1.0MG/ML INTERMITTENT
     Dates: start: 20221007

REACTIONS (1)
  - Seizure [Recovered/Resolved]

NARRATIVE: CASE EVENT DATE: 20221001
